FAERS Safety Report 13073903 (Version 4)
Quarter: 2017Q1

REPORT INFORMATION
  Report Type: Spontaneous
  Country: US (occurrence: US)
  Receive Date: 20161229
  Receipt Date: 20170303
  Transmission Date: 20170428
  Serious: Yes (Other)
  Sender: FDA-Public Use
  Company Number: US-IMPAX LABORATORIES, INC-2016-IPXL-02281

PATIENT
  Age: 76 Year
  Sex: Female
  Weight: 46 kg

DRUGS (20)
  1. XANAX [Concomitant]
     Active Substance: ALPRAZOLAM
     Indication: ANXIETY
     Dosage: 0.25 MG, EVERY 2DAY
     Route: 048
     Dates: start: 20160711
  2. MYRBETRIQ [Concomitant]
     Active Substance: MIRABEGRON
     Indication: BLADDER DISORDER
     Dosage: 25 MG, 1 /DAY; SWALLOWING WHOLE WITH WATER
     Route: 048
     Dates: start: 20161028
  3. TESSALON [Concomitant]
     Active Substance: BENZONATATE
     Indication: COUGH
     Dosage: 10 MG, 1 /DAY
     Route: 065
  4. REFRESH PLUS [Concomitant]
     Active Substance: CARBOXYMETHYLCELLULOSE SODIUM
     Indication: PRODUCT USED FOR UNKNOWN INDICATION
     Dosage: UNK, PRN
     Route: 065
     Dates: start: 20161028
  5. RYTARY [Suspect]
     Active Substance: CARBIDOPA\LEVODOPA
     Dosage: 36.25/145 MG, 1 CAPSULE QID
     Route: 065
     Dates: start: 20170119
  6. RIVASTIGMINE. [Concomitant]
     Active Substance: RIVASTIGMINE
     Indication: MEMORY IMPAIRMENT
     Dosage: 1.5 MG, 2 /DAY; IN MORNING AND EVENING WITH FOOD
     Route: 048
     Dates: start: 20161028
  7. TRIACTIN [Concomitant]
     Indication: PRODUCT USED FOR UNKNOWN INDICATION
     Dosage: 15 ML BID/TID DAILY
     Route: 048
     Dates: start: 20160711
  8. LUNESTA [Concomitant]
     Active Substance: ESZOPICLONE
     Indication: INSOMNIA
     Dosage: 2 MG, 1 /DAY
     Route: 065
  9. ACIDOPHILUS [Concomitant]
     Active Substance: LACTOBACILLUS ACIDOPHILUS
     Indication: PRODUCT USED FOR UNKNOWN INDICATION
     Dosage: 1 CAPSULES EVERY DAY
     Route: 048
  10. MULTIVITAMIN [Concomitant]
     Active Substance: VITAMINS
     Indication: PRODUCT USED FOR UNKNOWN INDICATION
     Dosage: 1 CAPSULE, DAILY
     Route: 065
     Dates: start: 20160701
  11. MELATONIN [Concomitant]
     Active Substance: MELATONIN
     Indication: PRODUCT USED FOR UNKNOWN INDICATION
     Dosage: 3 MG, PRN
     Route: 065
     Dates: start: 20160701
  12. REMERON SOLTAB [Concomitant]
     Active Substance: MIRTAZAPINE
     Indication: DEPRESSION
     Dosage: PLACE 3 TABLET EVERY DAY ON TOP OF TONGUE, ALLOW TO DISSOLVE, THEN SWALLOW IN EVENING PRIOR TO SLEEP
     Route: 065
     Dates: start: 20161028
  13. REMERON SOLTAB [Concomitant]
     Active Substance: MIRTAZAPINE
     Indication: SLEEP DISORDER
  14. REMERON SOLTAB [Concomitant]
     Active Substance: MIRTAZAPINE
     Indication: INCREASED APPETITE
  15. SINEMET [Concomitant]
     Active Substance: CARBIDOPA\LEVODOPA
     Indication: PARKINSON^S DISEASE
     Dosage: 25/100 MG ONE TABLET AT 7 AM, ONE AT 10 AM AND 1/2 AT 1 PM (3 TIMES A DAY); AT TIMES
     Route: 065
     Dates: start: 20160825
  16. JEVITY 1.2 CAL [Concomitant]
     Indication: PRODUCT USED FOR UNKNOWN INDICATION
     Dosage: 2 CANS BY FEEDING TUBE DAILY; 3 TIMES A DAY
     Route: 065
     Dates: start: 20160701
  17. RYTARY [Suspect]
     Active Substance: CARBIDOPA\LEVODOPA
     Indication: PARKINSON^S DISEASE
     Dosage: 23.75/95 MG 1 CAPSULE, 4/DAY
     Route: 048
     Dates: start: 20160711
  18. CARBIDOPA/LEVODOPA EXTENDED RELEASE [Concomitant]
     Indication: PARKINSON^S DISEASE
     Dosage: 1 TABLET BETWEEN 12-3 AM
     Route: 065
     Dates: start: 20161028
  19. MIRALAX [Concomitant]
     Active Substance: POLYETHYLENE GLYCOL 3350
     Indication: PRODUCT USED FOR UNKNOWN INDICATION
     Dosage: 17 G MIXED WITH 8 OZ OF WATER, JUICE, SODA, COFFEE OR TEA EVERY DAY
     Route: 048
     Dates: start: 20160701
  20. XOPENEX [Concomitant]
     Active Substance: LEVALBUTEROL HYDROCHLORIDE
     Indication: PRODUCT USED FOR UNKNOWN INDICATION
     Dosage: INHALE 3 ML BY NEBULIZATION ROUTE, EVERY 8HR
     Route: 065
     Dates: start: 20160711

REACTIONS (6)
  - Mycobacterial infection [Not Recovered/Not Resolved]
  - Fatigue [Not Recovered/Not Resolved]
  - Infection [Not Recovered/Not Resolved]
  - Tremor [Not Recovered/Not Resolved]
  - Blood pressure fluctuation [Unknown]
  - Freezing phenomenon [Not Recovered/Not Resolved]

NARRATIVE: CASE EVENT DATE: 2016
